APPROVED DRUG PRODUCT: NAPROXEN
Active Ingredient: NAPROXEN
Strength: 25MG/ML
Dosage Form/Route: SUSPENSION;ORAL
Application: A211910 | Product #001 | TE Code: AB
Applicant: NOVITIUM PHARMA LLC
Approved: Mar 10, 2021 | RLD: No | RS: No | Type: RX